FAERS Safety Report 16551172 (Version 1)
Quarter: 2019Q3

REPORT INFORMATION
  Report Type: Spontaneous
  Country: GB (occurrence: GB)
  Receive Date: 20190710
  Receipt Date: 20190710
  Transmission Date: 20191004
  Serious: Yes (Other)
  Sender: FDA-Public Use
  Company Number: GB-ACCORD-137389

PATIENT
  Age: 57 Year
  Sex: Female
  Weight: 103.6 kg

DRUGS (6)
  1. AMLODIPINE [Suspect]
     Active Substance: AMLODIPINE BESYLATE
     Indication: HYPERTENSION
     Route: 048
     Dates: start: 20181022
  2. OVESTIN [Concomitant]
     Active Substance: ESTRIOL
  3. NORETHISTERONE [Concomitant]
     Active Substance: NORETHINDRONE
  4. LEVOTHYROXINE. [Concomitant]
     Active Substance: LEVOTHYROXINE
  5. OESTROGEL [Concomitant]
     Active Substance: ESTRADIOL
  6. MEBEVERINE [Concomitant]
     Active Substance: MEBEVERINE

REACTIONS (1)
  - Gastrooesophageal reflux disease [Not Recovered/Not Resolved]

NARRATIVE: CASE EVENT DATE: 20181022
